FAERS Safety Report 22070748 (Version 2)
Quarter: 2023Q2

REPORT INFORMATION
  Report Type: Report from Study
  Country: US (occurrence: US)
  Receive Date: 20230307
  Receipt Date: 20230411
  Transmission Date: 20230721
  Serious: Yes (Other)
  Sender: FDA-Public Use
  Company Number: US-ABBVIE-4330168

PATIENT
  Sex: Female

DRUGS (2)
  1. RINVOQ [Suspect]
     Active Substance: UPADACITINIB
     Indication: Psoriatic arthropathy
     Dosage: FORM STRENGTH: 15 MILLIGRAM
     Route: 048
     Dates: start: 20230127, end: 20230219
  2. RINVOQ [Suspect]
     Active Substance: UPADACITINIB
     Indication: Psoriatic arthropathy
     Dosage: FORM STRENGTH: 15 MILLIGRAM
     Route: 048
     Dates: start: 20230227

REACTIONS (9)
  - Medical procedure [Unknown]
  - Erythema nodosum [Unknown]
  - Hypersensitivity [Unknown]
  - Psoriatic arthropathy [Unknown]
  - Skin mass [Unknown]
  - Contusion [Unknown]
  - Skin reaction [Unknown]
  - Disability [Unknown]
  - Pain of skin [Unknown]

NARRATIVE: CASE EVENT DATE: 20230101
